FAERS Safety Report 7891081-1 (Version None)
Quarter: 2011Q4

REPORT INFORMATION
  Report Type: 
  Country: None (occurrence: None)
  Receive Date: 20111103
  Receipt Date: 20111025
  Transmission Date: 20120403
  Serious: Yes (Other)
  Sender: FDA-Public Use
  Company Number: DE-BAXTER-2011BH035060

PATIENT
  Sex: Female

DRUGS (7)
  1. CORTICOSTEROID [Concomitant]
     Indication: PREMEDICATION
     Route: 065
  2. CYCLOPHOSPHAMIDE [Suspect]
     Indication: BREAST CANCER
     Route: 042
  3. CIPRO [Concomitant]
     Indication: PROPHYLAXIS
     Route: 048
  4. ANTIEMETIC [Concomitant]
     Indication: PROPHYLAXIS
     Route: 065
  5. DOXORUBICIN HCL [Suspect]
     Indication: BREAST CANCER
     Route: 042
  6. DOCETAXEL [Suspect]
     Indication: BREAST CANCER
     Route: 042
  7. NEUPOGEN [Concomitant]
     Indication: PROPHYLAXIS
     Route: 065

REACTIONS (2)
  - NEUTROPENIC INFECTION [None]
  - NEUTROPENIA [None]
